FAERS Safety Report 21603859 (Version 1)
Quarter: 2022Q4

REPORT INFORMATION
  Report Type: Spontaneous
  Country: US (occurrence: US)
  Receive Date: 20221116
  Receipt Date: 20221116
  Transmission Date: 20230112
  Serious: No
  Sender: FDA-Public Use
  Company Number: US-PHARMAESSENTIA CORPORATION-US-2022-PEC-000904

PATIENT

DRUGS (3)
  1. BESREMI [Suspect]
     Active Substance: ROPEGINTERFERON ALFA-2B-NJFT
     Indication: Polycythaemia
     Dosage: 100 MCG, Q2W
     Route: 058
     Dates: start: 20221024
  2. BESREMI [Suspect]
     Active Substance: ROPEGINTERFERON ALFA-2B-NJFT
     Dosage: UNK
     Dates: start: 20221107
  3. GABAPENTIN [Concomitant]
     Active Substance: GABAPENTIN
     Indication: Limb discomfort
     Route: 065

REACTIONS (2)
  - Off label use [Unknown]
  - Somnolence [Recovered/Resolved]
